FAERS Safety Report 10396902 (Version 1)
Quarter: 2014Q3

REPORT INFORMATION
  Report Type: Report from Study
  Country: US (occurrence: US)
  Receive Date: 20140820
  Receipt Date: 20140820
  Transmission Date: 20150326
  Serious: Yes (Other)
  Sender: FDA-Public Use
  Company Number: US-BAYER-2014-121640

PATIENT
  Age: 51 Year
  Sex: Male

DRUGS (2)
  1. BETASERON [Suspect]
     Active Substance: INTERFERON BETA-1B
     Indication: MULTIPLE SCLEROSIS
     Dosage: 0.065 MG, QOD
     Route: 058
     Dates: start: 20140729, end: 20140808
  2. BETASERON [Suspect]
     Active Substance: INTERFERON BETA-1B
     Indication: MULTIPLE SCLEROSIS
     Dosage: 0.125 MG, QOD
     Route: 058
     Dates: start: 20140810

REACTIONS (3)
  - Aphagia [None]
  - Fatigue [None]
  - Malaise [None]

NARRATIVE: CASE EVENT DATE: 20140810
